FAERS Safety Report 8121985-6 (Version None)
Quarter: 2012Q1

REPORT INFORMATION
  Report Type: 
  Country: None (occurrence: None)
  Receive Date: 20120208
  Receipt Date: 20120203
  Transmission Date: 20120608
  Serious: Yes (Hospitalization)
  Sender: FDA-Public Use
  Company Number: CA-B.I. PHARMACEUTICALS,INC./RIDGEFIELD-2012-CN-00178CN

PATIENT
  Age: 70 Year
  Sex: Male

DRUGS (1)
  1. PRADAXA [Suspect]
     Dates: start: 20111001

REACTIONS (2)
  - LOWER GASTROINTESTINAL HAEMORRHAGE [None]
  - RECTAL CANCER [None]
